FAERS Safety Report 16449624 (Version 1)
Quarter: 2019Q2

REPORT INFORMATION
  Report Type: Spontaneous
  Country: US (occurrence: US)
  Receive Date: 20190619
  Receipt Date: 20190619
  Transmission Date: 20190711
  Serious: Yes (Other)
  Sender: FDA-Public Use
  Company Number: US-ELI_LILLY_AND_COMPANY-US201906005170

PATIENT
  Sex: Female

DRUGS (4)
  1. HUMULIN R [Suspect]
     Active Substance: INSULIN HUMAN
     Dosage: 100 U, BID, AFTERNOON, AND EVENING
     Route: 058
  2. HUMULIN R [Suspect]
     Active Substance: INSULIN HUMAN
     Dosage: 50 U, BID, AFTERNOON, AND EVENING
     Route: 058
     Dates: start: 20190520
  3. HUMULIN R [Suspect]
     Active Substance: INSULIN HUMAN
     Indication: TYPE 2 DIABETES MELLITUS
     Dosage: 125 U, EACH MORNING
     Route: 058
     Dates: start: 20190520
  4. HUMULIN R [Suspect]
     Active Substance: INSULIN HUMAN
     Dosage: 125 U, EACH MORNING
     Route: 058

REACTIONS (10)
  - Anxiety [Unknown]
  - Depressed mood [Unknown]
  - Blood glucose increased [Not Recovered/Not Resolved]
  - Drug ineffective [Not Recovered/Not Resolved]
  - Neuropathy peripheral [Unknown]
  - Malaise [Not Recovered/Not Resolved]
  - Frequent bowel movements [Not Recovered/Not Resolved]
  - Neoplasm malignant [Unknown]
  - Micturition urgency [Not Recovered/Not Resolved]
  - Anger [Unknown]
